FAERS Safety Report 6640519-6 (Version None)
Quarter: 2010Q1

REPORT INFORMATION
  Report Type: 
  Country: None (occurrence: None)
  Receive Date: 20100318
  Receipt Date: 20100310
  Transmission Date: 20100710
  Serious: Yes (Other)
  Sender: FDA-Public Use
  Company Number: TR-MERCK-1003USA01922

PATIENT
  Sex: Male
  Weight: 1 kg

DRUGS (1)
  1. DECADRON [Suspect]
     Indication: CHRONIC RESPIRATORY DISEASE
     Route: 048

REACTIONS (1)
  - EMPYEMA [None]
